FAERS Safety Report 22310435 (Version 8)
Quarter: 2024Q1

REPORT INFORMATION
  Report Type: Spontaneous
  Country: US (occurrence: US)
  Receive Date: 20230511
  Receipt Date: 20240111
  Transmission Date: 20240410
  Serious: Yes (Hospitalization, Other)
  Sender: FDA-Public Use
  Company Number: US-BRISTOL-MYERS SQUIBB COMPANY-2023-052915

PATIENT
  Age: 83 Year
  Sex: Female

DRUGS (5)
  1. REVLIMID [Suspect]
     Active Substance: LENALIDOMIDE
     Indication: Plasma cell myeloma
     Dosage: TAKE 1 WHOLE CAPSULE ORALLY WITH
     Route: 048
     Dates: start: 20230412
  2. REVLIMID [Suspect]
     Active Substance: LENALIDOMIDE
     Dosage: TAKE 1 WHOLE CAPSULE ORALLY WITH WATER AT SAME TIME DAILY FOR 21 DAYS ON, 7 OFF, W/ OR W/O FOOD (AFT
     Route: 048
     Dates: start: 20230414
  3. REVLIMID [Suspect]
     Active Substance: LENALIDOMIDE
     Dosage: TAKE 1 WHOLE CAPSULE ORALLY WITH WATER AT SAME TIME DAILY FOR 21 DAYS ON, 7 OFF, W/ OR W/O FOOD (AFT
     Route: 048
     Dates: start: 20230420
  4. REVLIMID [Suspect]
     Active Substance: LENALIDOMIDE
     Dosage: TAKE 1 WHOLE CAPSULE ORALLY WITH WATER AT SAME TIME DAILY FOR 21 DAYS ON, 7 OFF, W/ OR W/O FOOD (AFT
     Route: 048
     Dates: start: 20230530
  5. VELCADE [Suspect]
     Active Substance: BORTEZOMIB
     Indication: Product used for unknown indication

REACTIONS (8)
  - Haemoglobin decreased [Not Recovered/Not Resolved]
  - Renal disorder [Recovered/Resolved]
  - Fatigue [Not Recovered/Not Resolved]
  - Hepatic enzyme increased [Not Recovered/Not Resolved]
  - Abdominal pain upper [Not Recovered/Not Resolved]
  - Back pain [Not Recovered/Not Resolved]
  - Pain in extremity [Not Recovered/Not Resolved]
  - Diarrhoea [Recovered/Resolved]
